FAERS Safety Report 9892141 (Version 3)
Quarter: 2014Q2

REPORT INFORMATION
  Report Type: Spontaneous
  Country: JP (occurrence: JP)
  Receive Date: 20140212
  Receipt Date: 20140508
  Transmission Date: 20141212
  Serious: Yes (Hospitalization, Other)
  Sender: FDA-Public Use
  Company Number: JP-UCBSA-111827

PATIENT
  Age: 22 Year
  Sex: Male
  Weight: 51.6 kg

DRUGS (8)
  1. KEPPRA [Suspect]
     Indication: EPILEPSY
     Route: 048
  2. VANCOMYCIN [Suspect]
     Indication: STAPHYLOCOCCAL INFECTION
  3. TEICOPLANIN [Suspect]
  4. TEICOPLANIN [Suspect]
  5. DAPTOMYCIN [Suspect]
     Indication: SWELLING
     Dosage: 4 MG/KG/DAY
  6. DAPTOMYCIN [Suspect]
     Indication: FEELING HOT
     Dosage: 4 MG/KG/DAY
  7. SODIUM VALPROATE [Concomitant]
     Dosage: UNKNOWN FREQUENCY, SLOW RELEASE TABLET
     Route: 048
  8. CLONAZEPAM [Concomitant]
     Dosage: UNKNOWN FREQUENCY
     Route: 048

REACTIONS (7)
  - Osteomyelitis chronic [Unknown]
  - Skin ulcer [Unknown]
  - Red man syndrome [Unknown]
  - Staphylococcal infection [Recovered/Resolved]
  - Rash generalised [Unknown]
  - Pyrexia [Unknown]
  - Blood creatine phosphokinase increased [Recovering/Resolving]
